FAERS Safety Report 12741156 (Version 1)
Quarter: 2016Q3

REPORT INFORMATION
  Report Type: Report from Study
  Country: MX (occurrence: MX)
  Receive Date: 20160914
  Receipt Date: 20160914
  Transmission Date: 20161109
  Serious: Yes (Other)
  Sender: FDA-Public Use
  Company Number: PHHY2016MX125323

PATIENT
  Sex: Male
  Weight: 110 kg

DRUGS (5)
  1. MIFLONIDE [Suspect]
     Active Substance: BUDESONIDE
     Indication: BRONCHITIS CHRONIC
     Dosage: 3 DF, QD
     Route: 055
     Dates: start: 20160822
  2. ULTIBRO BREEZHALER [Suspect]
     Active Substance: GLYCOPYRRONIUM\INDACATEROL
     Indication: BRONCHITIS CHRONIC
     Dosage: 1 DF, QD
     Route: 055
     Dates: start: 20160822
  3. MIFLONIDE [Suspect]
     Active Substance: BUDESONIDE
     Dosage: 2 DF, UNK
     Route: 055
  4. AVELOX [Concomitant]
     Active Substance: MOXIFLOXACIN HYDROCHLORIDE
     Indication: RESPIRATORY TRACT INFECTION
     Dosage: 1 DF, QD
     Route: 048
     Dates: start: 20160822
  5. INSULIN [Concomitant]
     Active Substance: INSULIN NOS
     Indication: DIABETES MELLITUS
     Dosage: STARTED 4 YEARS AGO
     Route: 058

REACTIONS (1)
  - Diabetes mellitus inadequate control [Unknown]
